FAERS Safety Report 5626909-9 (Version None)
Quarter: 2008Q1

REPORT INFORMATION
  Report Type: 
  Country: None (occurrence: None)
  Receive Date: 20080212
  Receipt Date: 20080128
  Transmission Date: 20080703
  Serious: Yes (Hospitalization)
  Sender: FDA-Public Use
  Company Number: 230106J08CAN

PATIENT
  Sex: Female

DRUGS (2)
  1. REBIF [Suspect]
     Indication: MULTIPLE SCLEROSIS
     Dates: start: 20010302, end: 20080127
  2. CLINDAMYCIN HCL [Concomitant]

REACTIONS (3)
  - BLISTER [None]
  - MUSCLE SPASMS [None]
  - URINARY TRACT INFECTION [None]
